FAERS Safety Report 4692987-7 (Version None)
Quarter: 2005Q2

REPORT INFORMATION
  Report Type: 
  Country: None (occurrence: None)
  Receive Date: 20050615
  Receipt Date: 20050513
  Transmission Date: 20051028
  Serious: Yes (Other)
  Sender: FDA-Public Use
  Company Number: 200504422

PATIENT
  Age: 62 Year
  Sex: Female
  Weight: 69.4003 kg

DRUGS (4)
  1. ZYMAR [Suspect]
     Indication: POSTOPERATIVE CARE
     Dosage: 1 DROP QID EYE
     Dates: start: 20050401
  2. FRED FORTE [Concomitant]
  3. HYDROCHLOROTHIAZIDE [Concomitant]
  4. TYLENOL [Concomitant]

REACTIONS (5)
  - ENDOPHTHALMITIS [None]
  - EYE PAIN [None]
  - POSTOPERATIVE INFECTION [None]
  - STAPHYLOCOCCAL INFECTION [None]
  - VISUAL ACUITY REDUCED [None]
